FAERS Safety Report 18968725 (Version 1)
Quarter: 2021Q1

REPORT INFORMATION
  Report Type: Spontaneous
  Country: US (occurrence: US)
  Receive Date: 20210303
  Receipt Date: 20210303
  Transmission Date: 20210420
  Serious: Yes (Hospitalization)
  Sender: FDA-Public Use
  Company Number: None

PATIENT
  Sex: Female

DRUGS (28)
  1. OCTREOTIDE. [Concomitant]
     Active Substance: OCTREOTIDE
     Indication: IDIOPATHIC URTICARIA
     Dosage: ?          OTHER FREQUENCY:Q28D ;?
  2. CROMOLYN SOD NEB [Concomitant]
  3. TIZANIDINE. [Concomitant]
     Active Substance: TIZANIDINE
  4. HYDROXYCHLOR [Concomitant]
     Active Substance: HYDROXYCHLOROQUINE
  5. NARCAN [Concomitant]
     Active Substance: NALOXONE HYDROCHLORIDE
  6. ONDANSETRON [Concomitant]
     Active Substance: ONDANSETRON
  7. OPIUM TIN [Concomitant]
  8. FENTANYL HR [Concomitant]
  9. NYSTATIN OIN [Concomitant]
  10. SYEDA [Concomitant]
     Active Substance: DROSPIRENONE\ETHINYL ESTRADIOL
  11. DESVENLAFAX ER [Concomitant]
  12. PANTOPRAZOLE [Concomitant]
     Active Substance: PANTOPRAZOLE
  13. RYDAPT [Concomitant]
     Active Substance: MIDOSTAURIN
  14. ARMOUR THYRO [Concomitant]
  15. HYDROXYZ HCL [Concomitant]
     Active Substance: HYDROXYZINE HYDROCHLORIDE
  16. METHYLPRED [Concomitant]
     Active Substance: METHYLPREDNISOLONE
  17. OXYMORPHONE HCL [Concomitant]
     Active Substance: OXYMORPHONE HYDROCHLORIDE
  18. SPIRIVA [Concomitant]
     Active Substance: TIOTROPIUM BROMIDE MONOHYDRATE
  19. CYANOCOBALM [Concomitant]
  20. NORETHIN ACE [Concomitant]
  21. REYVOW [Concomitant]
     Active Substance: LASMIDITAN
  22. SCOPOLAMINE DIS [Concomitant]
  23. TROKENDI XR [Concomitant]
     Active Substance: TOPIRAMATE
  24. ZOLPIDEM [Concomitant]
     Active Substance: ZOLPIDEM TARTRATE
  25. PROGESTERONE. [Concomitant]
     Active Substance: PROGESTERONE
  26. XOLAIR [Suspect]
     Active Substance: OMALIZUMAB
     Indication: IDIOPATHIC URTICARIA
     Dosage: ?          OTHER FREQUENCY:Q28D ;?
     Route: 058
     Dates: start: 20150728
  27. HYDROMORPHON [Concomitant]
     Active Substance: HYDROMORPHONE
  28. VENLAFAXINE [Concomitant]
     Active Substance: VENLAFAXINE HYDROCHLORIDE

REACTIONS (1)
  - Hospitalisation [None]
